FAERS Safety Report 16987105 (Version 1)
Quarter: 2019Q4

REPORT INFORMATION
  Report Type: Spontaneous
  Country: FR (occurrence: FR)
  Receive Date: 20191102
  Receipt Date: 20191102
  Transmission Date: 20200122
  Serious: Yes (Hospitalization)
  Sender: FDA-Public Use
  Company Number: FR-TEVA-2019-FR-1130327

PATIENT
  Age: 68 Year
  Sex: Female

DRUGS (6)
  1. PAROXETINE. [Suspect]
     Active Substance: PAROXETINE
     Dosage: 52 DF PER 1 TOTAL
     Route: 048
     Dates: start: 20171107, end: 20171107
  2. BROMAZEPAM [Suspect]
     Active Substance: BROMAZEPAM
     Dosage: 30 DF PER 1 TOTAL
     Route: 048
     Dates: start: 20171107, end: 20171107
  3. PANTOPRAZOLE [Suspect]
     Active Substance: PANTOPRAZOLE
     Dosage: 10 DF PER 1 TOTAL
     Route: 048
     Dates: start: 20171107, end: 20171107
  4. DEPAMIDE 300 MG, COMPRIM? PELLICUL? GASTRO-R?SISTANT [Suspect]
     Active Substance: VALPROMIDE
     Dosage: 38 DF PER 1 TOTAL
     Route: 048
     Dates: start: 20171107, end: 20171107
  5. DONORMYL (DOXYLAMINE SUCCINATE\SODIUM PHOSPHATE DIBASIC\SODIUM BROMIDE\SODIUM SULFATE) [Suspect]
     Active Substance: DOXYLAMINE\SODIUM BROMIDE\SODIUM PHOSPHATE, DIBASIC, ANHYDROUS\SODIUM SULFATE
     Dosage: 10 DF PER 1 TOTAL
     Route: 048
     Dates: start: 20171107, end: 20171107
  6. ZOLPIDEM [Suspect]
     Active Substance: ZOLPIDEM TARTRATE
     Dosage: 14 DF PER 1 TOTAL
     Route: 048
     Dates: start: 20171107, end: 20171107

REACTIONS (3)
  - Fall [Recovered/Resolved with Sequelae]
  - Rhabdomyolysis [Recovered/Resolved]
  - Drug abuse [Recovered/Resolved]

NARRATIVE: CASE EVENT DATE: 20171107
